FAERS Safety Report 6091905-7 (Version None)
Quarter: 2009Q1

REPORT INFORMATION
  Report Type: 
  Country: None (occurrence: None)
  Receive Date: 20090225
  Receipt Date: 20080924
  Transmission Date: 20090719
  Serious: No
  Sender: FDA-Public Use
  Company Number: A0749021A

PATIENT
  Age: 31 Year
  Sex: Male

DRUGS (2)
  1. VALTREX [Suspect]
     Indication: HERPES ZOSTER
     Dosage: 1G THREE TIMES PER DAY
     Route: 048
     Dates: start: 20080922, end: 20080922
  2. NO CONCURRENT MEDICATION [Concomitant]

REACTIONS (4)
  - DYSPNOEA [None]
  - HEADACHE [None]
  - PHARYNGEAL OEDEMA [None]
  - SWOLLEN TONGUE [None]
